FAERS Safety Report 15471185 (Version 2)
Quarter: 2018Q4

REPORT INFORMATION
  Report Type: Spontaneous
  Country: US (occurrence: US)
  Receive Date: 20181006
  Receipt Date: 20181214
  Transmission Date: 20190205
  Serious: Yes (Other)
  Sender: FDA-Public Use
  Company Number: US-009507513-1809USA010741

PATIENT
  Age: 58 Year
  Sex: Female
  Weight: 63.49 kg

DRUGS (1)
  1. ZEPATIER [Suspect]
     Active Substance: ELBASVIR\GRAZOPREVIR
     Indication: HEPATITIS C
     Dosage: 50/100MG, DAILY
     Route: 048
     Dates: start: 20170503, end: 20170726

REACTIONS (2)
  - Drug ineffective [Unknown]
  - Hepatitis C [Recovering/Resolving]

NARRATIVE: CASE EVENT DATE: 20180612
